FAERS Safety Report 11363103 (Version 5)
Quarter: 2015Q4

REPORT INFORMATION
  Report Type: Report from Study
  Country: US (occurrence: US)
  Receive Date: 20150810
  Receipt Date: 20151020
  Transmission Date: 20160304
  Serious: No
  Sender: FDA-Public Use
  Company Number: US-AMGEN-USASL2015080018

PATIENT
  Age: 51 Year
  Sex: Female

DRUGS (3)
  1. METHOTREXATE (METHOTREXATE SODIUM) [Suspect]
     Active Substance: METHOTREXATE SODIUM
     Indication: PRODUCT USED FOR UNKNOWN INDICATION
     Dosage: UNK UNK, QWK
     Route: 065
  2. ENBREL [Suspect]
     Active Substance: ETANERCEPT
     Dosage: UNK UNK, UNK
     Route: 065
  3. ENBREL [Suspect]
     Active Substance: ETANERCEPT
     Indication: RHEUMATOID ARTHRITIS
     Dosage: 50 MG, QWK
     Route: 065
     Dates: start: 20150802, end: 20150913

REACTIONS (12)
  - Injection site mass [Not Recovered/Not Resolved]
  - Headache [Unknown]
  - Injection site erythema [Unknown]
  - Injection site induration [Unknown]
  - Injection site pain [Unknown]
  - Paraesthesia [Unknown]
  - Sinusitis [Unknown]
  - Injection site warmth [Unknown]
  - Erythema [Unknown]
  - Injection site pruritus [Unknown]
  - Skin warm [Unknown]
  - Injection site reaction [Unknown]

NARRATIVE: CASE EVENT DATE: 201508
